FAERS Safety Report 21614070 (Version 4)
Quarter: 2022Q4

REPORT INFORMATION
  Report Type: Report from Study
  Country: AU (occurrence: AU)
  Receive Date: 20221118
  Receipt Date: 20221223
  Transmission Date: 20230112
  Serious: Yes (Hospitalization)
  Sender: FDA-Public Use
  Company Number: AU-GILEAD-2022-0605357

PATIENT
  Sex: Female
  Weight: 168.6 kg

DRUGS (7)
  1. SACITUZUMAB GOVITECAN [Suspect]
     Active Substance: SACITUZUMAB GOVITECAN
     Indication: Neoplasm
     Dosage: 1270 MG D1 AND D8 OF 28 DAY CYCLE
     Route: 042
     Dates: start: 20221103, end: 20221110
  2. GASTROSTOP [Concomitant]
     Dosage: 2 TABS
     Dates: start: 20221114
  3. ATENOLOL [Concomitant]
     Active Substance: ATENOLOL
     Dosage: UNK
     Dates: start: 2015
  4. FUROSEMIDE [Concomitant]
     Active Substance: FUROSEMIDE
     Dosage: UNK
     Dates: start: 2015
  5. VITAMIN D NOS [Concomitant]
     Active Substance: VITAMIN D NOS
     Dosage: UNK
     Dates: start: 2021
  6. RIVAROXABAN [Concomitant]
     Active Substance: RIVAROXABAN
     Dosage: UNK
     Dates: start: 202001
  7. CYSTIN [ACETYLCYSTEINE] [Concomitant]
     Dosage: UNK
     Dates: start: 20220501

REACTIONS (3)
  - Acute kidney injury [Unknown]
  - Febrile neutropenia [Recovered/Resolved with Sequelae]
  - Colitis [Recovered/Resolved with Sequelae]

NARRATIVE: CASE EVENT DATE: 20221115
